FAERS Safety Report 4771133-5 (Version None)
Quarter: 2005Q3

REPORT INFORMATION
  Report Type: 
  Country: None (occurrence: None)
  Receive Date: 20050912
  Receipt Date: 20050513
  Transmission Date: 20060218
  Serious: No
  Sender: FDA-Public Use
  Company Number: 2005-01075

PATIENT
  Sex: Male

DRUGS (1)
  1. VELCADE [Suspect]
     Dates: end: 20041223

REACTIONS (3)
  - BURNING SENSATION [None]
  - NEUROPATHY [None]
  - PAIN [None]
